FAERS Safety Report 21979367 (Version 1)
Quarter: 2023Q1

REPORT INFORMATION
  Report Type: Spontaneous
  Country: US (occurrence: None)
  Receive Date: 20230208
  Receipt Date: 20230208
  Transmission Date: 20230417
  Serious: Yes (Other)
  Sender: FDA-Public Use
  Company Number: None

PATIENT
  Sex: Male

DRUGS (1)
  1. XOLAIR [Suspect]
     Active Substance: OMALIZUMAB
     Indication: Asthma
     Dosage: 150 MG/ML  SUBCUTANEOUS ??INJECT 1 SYRINGE (150 MG) UNDER THE SKIN (SUBCUTANEOUS INJECTION) EVERY MO
     Route: 058

REACTIONS (2)
  - Respiratory disorder [None]
  - Impaired quality of life [None]
